FAERS Safety Report 9009969 (Version 2)
Quarter: 2013Q1

REPORT INFORMATION
  Report Type: Spontaneous
  Country: AU (occurrence: AU)
  Receive Date: 20130110
  Receipt Date: 20130130
  Transmission Date: 20140127
  Serious: Yes (Other)
  Sender: FDA-Public Use
  Company Number: AU-ASTRAZENECA-2013SE00083

PATIENT
  Age: 87 Year
  Sex: Female

DRUGS (5)
  1. ARIMIDEX [Suspect]
     Indication: BREAST CANCER FEMALE
     Route: 048
     Dates: start: 20120401, end: 2012
  2. SINEMET [Concomitant]
  3. PROTOS [Concomitant]
  4. VITAMIN D [Concomitant]
  5. VITAMIN E [Concomitant]

REACTIONS (2)
  - Breast cancer [Not Recovered/Not Resolved]
  - Intentional drug misuse [Unknown]
